FAERS Safety Report 7972993-7 (Version None)
Quarter: 2011Q4

REPORT INFORMATION
  Report Type: 
  Country: None (occurrence: None)
  Receive Date: 20111213
  Receipt Date: 20111207
  Transmission Date: 20120403
  Serious: Yes (Death)
  Sender: FDA-Public Use
  Company Number: MX-BRISTOL-MYERS SQUIBB COMPANY-16282147

PATIENT
  Age: 68 Year
  Sex: Male

DRUGS (1)
  1. IRBESARTAN AND HYDROCHLOROTHIAZIDE [Suspect]
     Indication: HYPERTENSION
     Dosage: 1 DF = 300MG + 12.5MG
     Route: 048
     Dates: start: 20100101, end: 20110928

REACTIONS (2)
  - FALL [None]
  - HEAD INJURY [None]
